FAERS Safety Report 5713814-2 (Version None)
Quarter: 2008Q2

REPORT INFORMATION
  Report Type: 
  Country: None (occurrence: None)
  Receive Date: 20080421
  Receipt Date: 20080404
  Transmission Date: 20081010
  Serious: Yes (Hospitalization)
  Sender: FDA-Public Use
  Company Number: 78636

PATIENT
  Age: 78 Year
  Sex: Male

DRUGS (2)
  1. IBUPROFEN [Suspect]
     Indication: ARTHRALGIA
     Dosage: ORAL
     Route: 048
  2. BISOPROLOL FUMARATE [Concomitant]

REACTIONS (3)
  - DRUG HYPERSENSITIVITY [None]
  - MENINGITIS ASEPTIC [None]
  - SOMNOLENCE [None]
